FAERS Safety Report 20843121 (Version 4)
Quarter: 2023Q1

REPORT INFORMATION
  Report Type: Spontaneous
  Country: US (occurrence: US)
  Receive Date: 20220518
  Receipt Date: 20230327
  Transmission Date: 20230417
  Serious: Yes (Other)
  Sender: FDA-Public Use
  Company Number: US-CIPLA LTD.-2022US03113

PATIENT

DRUGS (14)
  1. ATAZANAVIR [Interacting]
     Active Substance: ATAZANAVIR
     Indication: HIV infection
     Dosage: 300 MG, DAILY
     Route: 048
  2. RITONAVIR [Interacting]
     Active Substance: RITONAVIR
     Indication: HIV infection
     Dosage: 100 MG, DAILY
     Route: 048
  3. LIDOCAINE [Interacting]
     Active Substance: LIDOCAINE
     Indication: Postoperative analgesia
     Dosage: 1 MG/KG/H
     Route: 041
  4. LIDOCAINE [Interacting]
     Active Substance: LIDOCAINE
     Dosage: 120 MG FOLLOWED BY 2 MG/KG/H FOR 2 HOURS (TOTAL DOSE 460 MG)
     Route: 041
  5. LIDOCAINE [Interacting]
     Active Substance: LIDOCAINE
     Dosage: 1 MG/KG/H WAS RESTARTED APPROXIMATELY 1 HOUR LATER
     Route: 041
  6. FENTANYL CITRATE [Concomitant]
     Active Substance: FENTANYL CITRATE
     Indication: Postoperative analgesia
     Dosage: 1140 MICROGRAM, UNK
     Route: 065
  7. ABACAVIR\LAMIVUDINE [Concomitant]
     Active Substance: ABACAVIR\LAMIVUDINE
     Indication: HIV infection
     Dosage: 1 DOSAGE FORM (600/300 MG TABLET)), QD
     Route: 048
  8. ASPIRIN [Concomitant]
     Active Substance: ASPIRIN
     Indication: Product used for unknown indication
     Dosage: 325 MG, DAILY
     Route: 048
  9. CANDESARTAN [Concomitant]
     Active Substance: CANDESARTAN
     Indication: Product used for unknown indication
     Dosage: 16 MG DAILY
     Route: 048
  10. METOPROLOL SUCCINATE [Concomitant]
     Active Substance: METOPROLOL SUCCINATE
     Indication: Product used for unknown indication
     Dosage: 25 MG DAILY
     Route: 048
  11. HEPARIN [Concomitant]
     Active Substance: HEPARIN SODIUM
     Indication: Product used for unknown indication
     Dosage: 5000 U Q8H, TID
     Route: 058
  12. ROSUVASTATIN [Concomitant]
     Active Substance: ROSUVASTATIN
     Indication: Product used for unknown indication
     Dosage: 40 MG, QPM (EVERY EVENING), QD
     Route: 048
  13. CIPROFLOXACIN [Concomitant]
     Active Substance: CIPROFLOXACIN
     Indication: Product used for unknown indication
     Dosage: 400 MG, Q12H (EVERY 12 HOURS)
     Route: 042
  14. VANCOMYCIN [Concomitant]
     Active Substance: VANCOMYCIN
     Indication: Product used for unknown indication
     Dosage: 1.25 GRAM, BID (1.25 G Q12H)
     Route: 042

REACTIONS (15)
  - Unresponsive to stimuli [Recovered/Resolved]
  - Hyperhidrosis [Unknown]
  - Heart rate increased [Unknown]
  - Feeling hot [Unknown]
  - Toxicity to various agents [Unknown]
  - Sinus tachycardia [Unknown]
  - Hypertension [Unknown]
  - Body temperature increased [Unknown]
  - Oxygen saturation decreased [Recovered/Resolved]
  - Electrocardiogram T wave abnormal [Unknown]
  - Dizziness [Unknown]
  - Blood glucose increased [Unknown]
  - Drug interaction [Unknown]
  - Drug level increased [Unknown]
  - Loss of consciousness [Recovered/Resolved]
